FAERS Safety Report 6496331-4 (Version None)
Quarter: 2009Q4

REPORT INFORMATION
  Report Type: 
  Country: None (occurrence: None)
  Receive Date: 20091210
  Receipt Date: 20091204
  Transmission Date: 20100525
  Serious: Yes (Hospitalization)
  Sender: FDA-Public Use
  Company Number: 2008SP006558

PATIENT
  Age: 45 Year
  Sex: Female
  Weight: 58.5 kg

DRUGS (5)
  1. PEG-INTRON [Suspect]
     Indication: HEPATITIS C
     Dosage: 80 MCG;QW;SC ; SC
     Route: 058
     Dates: start: 20070219, end: 20070827
  2. PEG-INTRON [Suspect]
     Indication: HEPATITIS C
     Dosage: 80 MCG;QW;SC ; SC
     Route: 058
     Dates: start: 20070907, end: 20080304
  3. RIBAVIRIN [Suspect]
     Indication: HEPATITIS C
     Dosage: 400 MG ;BID;PO ; PO
     Route: 048
     Dates: start: 20070219, end: 20070831
  4. RIBAVIRIN [Suspect]
     Indication: HEPATITIS C
     Dosage: 400 MG ;BID;PO ; PO
     Route: 048
     Dates: start: 20070907, end: 20080304
  5. REMICADE [Suspect]
     Indication: HEPATITIS C
     Dosage: 300 MG;IV
     Route: 042
     Dates: start: 20070212, end: 20070212

REACTIONS (12)
  - AGITATION [None]
  - COMMUNICATION DISORDER [None]
  - CONFUSIONAL STATE [None]
  - CONSTRICTED AFFECT [None]
  - DEPRESSION [None]
  - DISTURBANCE IN ATTENTION [None]
  - HALLUCINATION [None]
  - INSOMNIA [None]
  - PARANOIA [None]
  - PSYCHOTIC DISORDER [None]
  - RESTLESSNESS [None]
  - TREATMENT NONCOMPLIANCE [None]
